FAERS Safety Report 4763569-3 (Version None)
Quarter: 2005Q3

REPORT INFORMATION
  Report Type: 
  Country: None (occurrence: None)
  Receive Date: 20050908
  Receipt Date: 20050810
  Transmission Date: 20060218
  Serious: Yes (Death, Hospitalization)
  Sender: FDA-Public Use
  Company Number: JP-MERCK-0508USA02090

PATIENT
  Age: 74 Year
  Sex: Male

DRUGS (7)
  1. PEPCID [Suspect]
     Indication: PROPHYLAXIS
     Route: 042
     Dates: start: 20050729, end: 20050731
  2. PREDOPA [Concomitant]
     Indication: SHOCK
     Route: 065
     Dates: start: 20050728, end: 20050803
  3. DORMICUM (MIDAZOLAM) [Suspect]
     Indication: SEDATION
     Route: 065
     Dates: start: 20050728, end: 20050728
  4. DORMICUM (MIDAZOLAM) [Suspect]
     Route: 065
     Dates: start: 20050729, end: 20050730
  5. DORMICUM (MIDAZOLAM) [Suspect]
     Route: 065
     Dates: start: 20050731, end: 20050731
  6. PREDNISOLONE [Suspect]
     Indication: INTERSTITIAL LUNG DISEASE
     Route: 042
     Dates: start: 20050728, end: 20050803
  7. PAZUCROSS [Concomitant]
     Route: 065
     Dates: start: 20050722, end: 20050728

REACTIONS (13)
  - ALANINE AMINOTRANSFERASE INCREASED [None]
  - ASPARTATE AMINOTRANSFERASE INCREASED [None]
  - BLOOD ALKALINE PHOSPHATASE INCREASED [None]
  - BLOOD LACTATE DEHYDROGENASE INCREASED [None]
  - CONDITION AGGRAVATED [None]
  - GAMMA-GLUTAMYLTRANSFERASE INCREASED [None]
  - HAEMATOCRIT DECREASED [None]
  - HAEMOGLOBIN DECREASED [None]
  - HEPATIC FUNCTION ABNORMAL [None]
  - INTERSTITIAL LUNG DISEASE [None]
  - PLATELET COUNT DECREASED [None]
  - PNEUMONIA [None]
  - WHITE BLOOD CELL COUNT INCREASED [None]
